FAERS Safety Report 25984754 (Version 1)
Quarter: 2025Q4

REPORT INFORMATION
  Report Type: Spontaneous
  Country: AU (occurrence: AU)
  Receive Date: 20251031
  Receipt Date: 20251031
  Transmission Date: 20260118
  Serious: Yes (Other)
  Sender: PURDUE
  Company Number: AU-PURDUE-USA-2025-0321758

PATIENT
  Age: 40 Year
  Sex: Female

DRUGS (14)
  1. HYDROMORPHONE HYDROCHLORIDE [Suspect]
     Active Substance: HYDROMORPHONE HYDROCHLORIDE
     Indication: Immunochemotherapy
     Dosage: DOSE: 675 MILLIGRAM; INTERVAL: 1 DAY; ROUTE OF ADMINISTRATION: ORAL
     Route: 048
     Dates: start: 2019
  2. HYDROMORPHONE HYDROCHLORIDE [Suspect]
     Active Substance: HYDROMORPHONE HYDROCHLORIDE
     Indication: Neuralgia
     Dosage: ROUTE OF ADMINISTRATION: SUBCUTANEOUS
     Route: 058
     Dates: start: 2019, end: 2019
  3. FENTANYL CITRATE [Suspect]
     Active Substance: FENTANYL CITRATE
     Indication: Immunochemotherapy
     Dosage: UNK
     Route: 065
  4. FENTANYL CITRATE [Suspect]
     Active Substance: FENTANYL CITRATE
     Indication: Neuralgia
     Dosage: UNK
     Route: 065
     Dates: start: 2019
  5. KETAMINE HYDROCHLORIDE [Suspect]
     Active Substance: KETAMINE HYDROCHLORIDE
     Indication: Immunochemotherapy
     Dosage: UNK
     Route: 065
  6. KETAMINE HYDROCHLORIDE [Suspect]
     Active Substance: KETAMINE HYDROCHLORIDE
     Indication: Neuralgia
     Dosage: UNK
     Route: 065
  7. KETOROLAC [Suspect]
     Active Substance: KETOROLAC TROMETHAMINE
     Indication: Immunochemotherapy
     Dosage: UNK
     Route: 065
  8. KETOROLAC [Suspect]
     Active Substance: KETOROLAC TROMETHAMINE
     Indication: Neuralgia
     Dosage: DOSE: 10 MILLIGRAM; INTERVAL: 1 DAY
     Route: 065
     Dates: start: 2019, end: 2019
  9. METHADONE HYDROCHLORIDE [Suspect]
     Active Substance: METHADONE HYDROCHLORIDE
     Indication: Immunochemotherapy
     Dosage: UNK
     Route: 065
  10. METHADONE HYDROCHLORIDE [Suspect]
     Active Substance: METHADONE HYDROCHLORIDE
     Indication: Neuralgia
     Dosage: DOSE: 60 MILLIGRAM; INTERVAL: 1 DAY
     Route: 065
     Dates: start: 2019
  11. METHYLPREDNISOLONE [Suspect]
     Active Substance: METHYLPREDNISOLONE
     Indication: Immunochemotherapy
     Dosage: UNK
     Route: 065
  12. METHYLPREDNISOLONE [Suspect]
     Active Substance: METHYLPREDNISOLONE
     Indication: Pyrexia
     Dosage: DOSE: 1 MILLIGRAM PER KILOGRAM; INTERVAL: 1 DAY
     Route: 065
     Dates: start: 2019
  13. PREGABALIN [Suspect]
     Active Substance: PREGABALIN
     Indication: Immunochemotherapy
     Dosage: UNK
     Route: 065
  14. PREGABALIN [Suspect]
     Active Substance: PREGABALIN
     Indication: Neuralgia
     Dosage: UNK
     Route: 065

REACTIONS (2)
  - Haemophagocytic lymphohistiocytosis [Not Recovered/Not Resolved]
  - Drug ineffective [Not Recovered/Not Resolved]

NARRATIVE: CASE EVENT DATE: 20190101
